FAERS Safety Report 5591123-2 (Version None)
Quarter: 2008Q1

REPORT INFORMATION
  Report Type: 
  Country: None (occurrence: None)
  Receive Date: 20080110
  Receipt Date: 20080102
  Transmission Date: 20080703
  Serious: Yes (Hospitalization)
  Sender: FDA-Public Use
  Company Number: 2008SP000071

PATIENT
  Age: 48 Year
  Sex: Female

DRUGS (4)
  1. PEG-INTRON [Suspect]
     Indication: HEPATITIS C
     Dosage: 1.5 MCG/KG; QW; SC
     Route: 058
     Dates: start: 20030101, end: 20030101
  2. RIBAVIRIN [Suspect]
     Indication: HEPATITIS C
     Dosage: 1200 MG; QD; PO
     Route: 048
     Dates: start: 20030101, end: 20030101
  3. INTERFERON ALFA (MANUFACTURER UNKNOWN) [Concomitant]
  4. RIBAVIRIN [Concomitant]

REACTIONS (4)
  - ALANINE AMINOTRANSFERASE INCREASED [None]
  - ANTIACETYLCHOLINE RECEPTOR ANTIBODY POSITIVE [None]
  - HEPATITIS C RNA POSITIVE [None]
  - MYASTHENIA GRAVIS [None]
